FAERS Safety Report 7132800-1 (Version None)
Quarter: 2010Q4

REPORT INFORMATION
  Report Type: 
  Country: None (occurrence: None)
  Receive Date: 20101202
  Receipt Date: 20101122
  Transmission Date: 20110411
  Serious: Yes (Other)
  Sender: FDA-Public Use
  Company Number: US-PFIZER INC-2010154271

PATIENT
  Sex: Female
  Weight: 99.32 kg

DRUGS (7)
  1. LYRICA [Suspect]
     Indication: FIBROMYALGIA
     Dosage: 50 MG, 2X/DAY
     Dates: start: 20101119
  2. POTASSIUM [Suspect]
     Dosage: UNK
     Route: 048
  3. WELLBUTRIN [Concomitant]
     Indication: DEPRESSION
     Dosage: 100 MG, 2X/DAY
  4. ATIVAN [Concomitant]
     Indication: ANXIETY
     Dosage: UNK
  5. LASIX [Concomitant]
     Indication: OEDEMA PERIPHERAL
     Dosage: 20 MG, AS NEEDED
  6. MORPHINE [Concomitant]
     Indication: PAIN
     Dosage: 30 MG, AS NEEDED
  7. ESTROGENS [Concomitant]
     Indication: HORMONE THERAPY
     Dosage: 1 MG, 1X/DAY

REACTIONS (2)
  - INSOMNIA [None]
  - PAIN [None]
